FAERS Safety Report 11003239 (Version 1)
Quarter: 2015Q2

REPORT INFORMATION
  Report Type: Spontaneous
  Country: US (occurrence: None)
  Receive Date: 20150408
  Receipt Date: 20150408
  Transmission Date: 20150821
  Serious: Yes (Other)
  Sender: FDA-Public Use
  Company Number: None

PATIENT
  Age: 32 Year
  Sex: Female

DRUGS (2)
  1. DOMPERIDONE [Suspect]
     Active Substance: DOMPERIDONE
     Indication: LACTATION DISORDER
     Dosage: 20 MG 3-4 TIMES PER DAY ORAL
     Route: 048
     Dates: start: 201408, end: 201501
  2. PRENATAL VITAMIN [Concomitant]
     Active Substance: VITAMINS

REACTIONS (6)
  - Palpitations [None]
  - Syncope [None]
  - Malaise [None]
  - Off label use [None]
  - Chest pain [None]
  - Fatigue [None]

NARRATIVE: CASE EVENT DATE: 201501
